FAERS Safety Report 16160791 (Version 1)
Quarter: 2019Q2

REPORT INFORMATION
  Report Type: Spontaneous
  Country: US (occurrence: US)
  Receive Date: 20190405
  Receipt Date: 20190405
  Transmission Date: 20190711
  Serious: No
  Sender: FDA-Public Use
  Company Number: US-TEVA-2019-US-1023280

PATIENT
  Sex: Female

DRUGS (3)
  1. NORTRIPTYLINE TEVA [Suspect]
     Active Substance: NORTRIPTYLINE
     Indication: FIBROMYALGIA
     Dosage: 2 DOSAGE FORMS DAILY;
     Route: 065
  2. NORTRIPTYLINE TEVA [Suspect]
     Active Substance: NORTRIPTYLINE
     Dosage: 50 MILLIGRAM DAILY;
     Route: 065
  3. PROPRANOLOL TEVA [Suspect]
     Active Substance: PROPRANOLOL HYDROCHLORIDE
     Indication: HEART RATE INCREASED
     Route: 065

REACTIONS (4)
  - Headache [Unknown]
  - Somnolence [Unknown]
  - Product substitution issue [Unknown]
  - Tinnitus [Unknown]

NARRATIVE: CASE EVENT DATE: 20190226
